FAERS Safety Report 4864496-3 (Version None)
Quarter: 2005Q4

REPORT INFORMATION
  Report Type: 
  Country: None (occurrence: None)
  Receive Date: 20051222
  Receipt Date: 20051205
  Transmission Date: 20060501
  Serious: Yes (Hospitalization)
  Sender: FDA-Public Use
  Company Number: 2005AP06280

PATIENT
  Age: 65 Year
  Sex: Male

DRUGS (2)
  1. ATENOLOL [Suspect]
     Indication: ILL-DEFINED DISORDER
     Route: 048
  2. TROMBYL [Concomitant]

REACTIONS (3)
  - HEART RATE ABNORMAL [None]
  - HEART RATE DECREASED [None]
  - PALPITATIONS [None]
